FAERS Safety Report 24162507 (Version 1)
Quarter: 2024Q3

REPORT INFORMATION
  Report Type: Report from Study
  Country: CN (occurrence: CN)
  Receive Date: 20240801
  Receipt Date: 20240801
  Transmission Date: 20241016
  Serious: Yes (Hospitalization)
  Sender: PPD DEVELOPMENT LP
  Company Number: CN-CSTONE PHARMACEUTICALS (SUZHOU) CO., LTD.-2024CN00983

PATIENT

DRUGS (2)
  1. PRALSETINIB [Suspect]
     Active Substance: PRALSETINIB
     Indication: Non-small cell lung cancer
     Dosage: UNK
     Route: 048
     Dates: start: 202205
  2. PRALSETINIB [Suspect]
     Active Substance: PRALSETINIB
     Dosage: 2 CAPSULES A DAY
     Route: 048
     Dates: start: 202205

REACTIONS (3)
  - Hyperpyrexia [Recovering/Resolving]
  - Pneumonia bacterial [Recovering/Resolving]
  - Blood pressure increased [Recovering/Resolving]

NARRATIVE: CASE EVENT DATE: 20220501
